FAERS Safety Report 20782289 (Version 1)
Quarter: 2022Q2

REPORT INFORMATION
  Report Type: Spontaneous
  Country: NL (occurrence: NL)
  Receive Date: 20220504
  Receipt Date: 20220504
  Transmission Date: 20220721
  Serious: Yes (Hospitalization)
  Sender: FDA-Public Use
  Company Number: None

PATIENT
  Age: 81 Year
  Sex: Male
  Weight: 76.8 kg

DRUGS (7)
  1. PANTOPRAZOLE [Suspect]
     Active Substance: PANTOPRAZOLE
     Indication: Prophylaxis
     Dosage: 40 MILLIGRAM, QD, (1 X PER DAY 1 PIECE)
     Dates: start: 20150714, end: 20220331
  2. PREDNISOLONE [Concomitant]
     Active Substance: PREDNISOLONE
     Dosage: UNK UNK, QD, (EYE DROPS, 10 MG/ML (MILLIGRAMS PER MILLILITER)
  3. FUROSEMIDE [Concomitant]
     Active Substance: FUROSEMIDE
     Dosage: 40 MILLIGRAM, (TABLET, 40 MG (MILLIGRAM)
  4. APIXABAN [Concomitant]
     Active Substance: APIXABAN
     Dosage: 5 MILLIGRAM, (TABLET, 5 MG (MILLIGRAM)
  5. COLCHICINE [Concomitant]
     Active Substance: COLCHICINE
     Dosage: 0.5 MILLIGRAM, (TABLET, 0,5 MG (MILLIGRAM)
  6. SODIUM CHLORIDE [Concomitant]
     Active Substance: SODIUM CHLORIDE
     Dosage: 50 MILLIGRAM PER MILLILITRE, (EYE DROPS 50 MG/ML (MILLIGRAM PER MILLILITER)
  7. ASCORBINEZUUR [Concomitant]
     Dosage: 50 MILLIGRAM, (TABLET, 50 MG (MILLIGRAM)

REACTIONS (2)
  - Paraesthesia [Recovered/Resolved]
  - Hypocalcaemia [Recovered/Resolved]

NARRATIVE: CASE EVENT DATE: 20220329
